FAERS Safety Report 8003272-X (Version None)
Quarter: 2011Q4

REPORT INFORMATION
  Report Type: 
  Country: None (occurrence: None)
  Receive Date: 20111219
  Receipt Date: 20111212
  Transmission Date: 20120403
  Serious: Yes (Death, Hospitalization)
  Sender: FDA-Public Use
  Company Number: 2011SP036084

PATIENT
  Age: 82 Year
  Sex: Male

DRUGS (4)
  1. METHOTREXATE SODIUM [Suspect]
     Indication: PRODUCT USED FOR UNKNOWN INDICATION
     Dosage: 20 MG, QW,  PARN
     Route: 051
     Dates: start: 20110704, end: 20110711
  2. BICNU [Suspect]
     Indication: PRODUCT USED FOR UNKNOWN INDICATION
     Dosage: 1 DF, TIW, TOP
     Route: 061
     Dates: start: 20110704, end: 20110713
  3. DIPROSONE [Suspect]
     Indication: PRODUCT USED FOR UNKNOWN INDICATION
     Dosage: 1 DF, QD, TOP
     Route: 061
     Dates: end: 20110713
  4. CLOBETASOL PROPIONATE [Suspect]
     Indication: PRODUCT USED FOR UNKNOWN INDICATION
     Dosage: 1 DF, TOP
     Route: 061
     Dates: end: 20110712

REACTIONS (5)
  - LYMPHOPENIA [None]
  - NECROTISING FASCIITIS [None]
  - BLOOD CREATINE PHOSPHOKINASE INCREASED [None]
  - STREPTOCOCCAL BACTERAEMIA [None]
  - MYOGLOBIN BLOOD INCREASED [None]
